FAERS Safety Report 21474656 (Version 1)
Quarter: 2022Q4

REPORT INFORMATION
  Report Type: Spontaneous
  Country: US (occurrence: None)
  Receive Date: 20221017
  Receipt Date: 20221017
  Transmission Date: 20230113
  Serious: Yes (Death)
  Sender: FDA-Public Use
  Company Number: None

PATIENT
  Age: 49 Year
  Sex: Male

DRUGS (2)
  1. GEMCITABINE [Suspect]
     Active Substance: GEMCITABINE
     Indication: Appendix cancer
     Dosage: 1700MG MG  Q 2 WEEKS IV?
     Route: 042
     Dates: start: 20220511, end: 20221007
  2. CARBOPLATIN [Suspect]
     Active Substance: CARBOPLATIN
     Indication: Appendix cancer
     Dosage: 900MG  Q 2 WEEKS IV?
     Route: 042
     Dates: start: 20220511, end: 20221007

REACTIONS (1)
  - Disease progression [None]

NARRATIVE: CASE EVENT DATE: 20221017
